FAERS Safety Report 12312453 (Version 1)
Quarter: 2016Q2

REPORT INFORMATION
  Report Type: Report from Study
  Country: US (occurrence: US)
  Receive Date: 20160428
  Receipt Date: 20160428
  Transmission Date: 20160815
  Serious: Yes (Death)
  Sender: FDA-Public Use
  Company Number: US-BEH-2016061721

PATIENT
  Sex: Female

DRUGS (5)
  1. CORTICOSTEROIDS [Suspect]
     Active Substance: CORTICOSTEROID NOS
     Indication: ENCEPHALITIS AUTOIMMUNE
  2. RITUXIMAB [Suspect]
     Active Substance: RITUXIMAB
     Indication: ENCEPHALITIS AUTOIMMUNE
  3. IVIG [Suspect]
     Active Substance: HUMAN IMMUNOGLOBULIN G
     Indication: ENCEPHALITIS AUTOIMMUNE
  4. PLASMA EXCHANGE [Suspect]
     Active Substance: ALBUMIN HUMAN
     Indication: ENCEPHALITIS AUTOIMMUNE
  5. CYCLOPHOSPHAMIDE. [Suspect]
     Active Substance: CYCLOPHOSPHAMIDE
     Indication: ENCEPHALITIS AUTOIMMUNE

REACTIONS (1)
  - Drug ineffective for unapproved indication [Fatal]
